FAERS Safety Report 7003603-3 (Version None)
Quarter: 2010Q3

REPORT INFORMATION
  Report Type: 
  Country: None (occurrence: None)
  Receive Date: 20100917
  Receipt Date: 20100910
  Transmission Date: 20110219
  Serious: Yes (Death, Other)
  Sender: FDA-Public Use
  Company Number: 2010US003639

PATIENT
  Age: 63 Year
  Sex: Male

DRUGS (15)
  1. PROGRAF [Suspect]
     Indication: LIVER TRANSPLANT
     Dosage: 0.5 MG, UID/QD,
     Dates: start: 20080302, end: 20091119
  2. PYRIXINE (PYRIMETHAMINE, SULFADOXINE) [Concomitant]
  3. COLACE (DOCUSATE SODIUM) [Concomitant]
  4. PREVACID [Concomitant]
  5. NEPHROCAPS (VITAMINS NOS) [Concomitant]
  6. FUROSEMIDE [Concomitant]
  7. VITAMIN D (COLECALCIFEROL) [Concomitant]
  8. MULTIVITAMINS, OTHER COMBINATIONS [Concomitant]
  9. LOSARTAN (LOSARTAN) [Concomitant]
  10. FLUCONAZOLE [Concomitant]
  11. LEVOFLOXACIN [Concomitant]
  12. METRONIDAZOLE [Concomitant]
  13. POTASSIUM (POTASSIUM) [Concomitant]
  14. TRAZODONE HCL [Concomitant]
  15. AZATHIOPRINE [Concomitant]

REACTIONS (3)
  - ACUTE PULMONARY OEDEMA [None]
  - EMPYEMA [None]
  - HEPATIC FAILURE [None]
